FAERS Safety Report 5723957-5 (Version None)
Quarter: 2008Q2

REPORT INFORMATION
  Report Type: 
  Country: None (occurrence: None)
  Receive Date: 20080430
  Receipt Date: 20080423
  Transmission Date: 20081010
  Serious: Yes (Hospitalization)
  Sender: FDA-Public Use
  Company Number: GB-ABBOTT-08P-167-0443301-00

PATIENT
  Sex: Female
  Weight: 41.314 kg

DRUGS (8)
  1. HUMIRA [Suspect]
     Indication: RHEUMATOID ARTHRITIS
     Route: 058
     Dates: start: 20071025, end: 20080317
  2. PREDNISOLONE [Concomitant]
     Indication: RHEUMATOID ARTHRITIS
     Route: 048
     Dates: start: 19910101
  3. LACTULOSE [Concomitant]
     Indication: CONSTIPATION
     Dosage: NOT REPORTED
  4. RISEDRONATE SODIUM [Concomitant]
     Indication: OSTEOPOROSIS
     Route: 048
  5. AMLODIPINE [Concomitant]
     Indication: HYPERTENSION
     Route: 048
  6. SULPHASALIZINE [Concomitant]
     Indication: RHEUMATOID ARTHRITIS
     Route: 048
  7. BENDROFLURNETHIAZIDE [Concomitant]
     Indication: HYPERTENSION
     Route: 048
  8. PARACETAMOL [Concomitant]
     Indication: ANALGESIA

REACTIONS (2)
  - INTESTINAL POLYP [None]
  - POLYP [None]
